FAERS Safety Report 25739768 (Version 1)
Quarter: 2025Q3

REPORT INFORMATION
  Report Type: Spontaneous
  Country: US (occurrence: None)
  Receive Date: 20250828
  Receipt Date: 20250828
  Transmission Date: 20251020
  Serious: No
  Sender: FDA-CTU
  Company Number: None

PATIENT
  Age: 70 Year
  Sex: Female
  Weight: 82 kg

DRUGS (1)
  1. LEQVIO [Suspect]
     Active Substance: INCLISIRAN SODIUM
     Indication: Hyperlipidaemia
     Dates: start: 20250210, end: 20250220

REACTIONS (2)
  - Pain [None]
  - Gastrointestinal pain [None]

NARRATIVE: CASE EVENT DATE: 20250210
